FAERS Safety Report 13610322 (Version 1)
Quarter: 2017Q2

REPORT INFORMATION
  Report Type: Spontaneous
  Country: JP (occurrence: JP)
  Receive Date: 20170605
  Receipt Date: 20170605
  Transmission Date: 20170830
  Serious: Yes (Life-Threatening, Other)
  Sender: FDA-Public Use
  Company Number: JP-ACCORD-052199

PATIENT
  Age: 37 Year
  Sex: Male
  Weight: 70 kg

DRUGS (3)
  1. CISPLATIN. [Suspect]
     Active Substance: CISPLATIN
     Indication: SERTOLI CELL TESTICULAR TUMOUR
     Dates: start: 20130604
  2. ETOPOSIDE. [Suspect]
     Active Substance: ETOPOSIDE
     Indication: SERTOLI CELL TESTICULAR TUMOUR
     Dates: start: 20130604
  3. BLEOMYCIN [Suspect]
     Active Substance: BLEOMYCIN SULFATE
     Indication: SERTOLI CELL TESTICULAR TUMOUR
     Dates: start: 20130604

REACTIONS (4)
  - Acute myocardial infarction [Recovered/Resolved]
  - Neutropenia [Recovered/Resolved]
  - Cardiac arrest [Recovered/Resolved]
  - Ventricular fibrillation [Recovered/Resolved]
